FAERS Safety Report 24678742 (Version 1)
Quarter: 2024Q4

REPORT INFORMATION
  Report Type: Spontaneous
  Country: US (occurrence: US)
  Receive Date: 20241129
  Receipt Date: 20241129
  Transmission Date: 20250115
  Serious: Yes (Other)
  Sender: BRISTOL-MYERS SQUIBB COMPANY
  Company Number: US-BRISTOL-MYERS SQUIBB COMPANY-2024-183148

PATIENT
  Age: 66 Year
  Sex: Male
  Weight: 111.58 kg

DRUGS (1)
  1. REVLIMID [Suspect]
     Active Substance: LENALIDOMIDE
     Indication: Diffuse large B-cell lymphoma
     Dosage: 3WKSON,1WKOFF
     Route: 048

REACTIONS (5)
  - Nausea [Unknown]
  - Constipation [Unknown]
  - Neuropathy peripheral [Unknown]
  - Fatigue [Unknown]
  - Off label use [Unknown]
